FAERS Safety Report 12931309 (Version 2)
Quarter: 2018Q2

REPORT INFORMATION
  Report Type: Spontaneous
  Country: US (occurrence: US)
  Receive Date: 20161110
  Receipt Date: 20180621
  Transmission Date: 20180711
  Serious: No
  Sender: FDA-Public Use
  Company Number: US-JAZZ-2016-US-018163

PATIENT
  Age: 59 Year
  Sex: Female

DRUGS (22)
  1. ALIGN [Concomitant]
     Active Substance: BIFIDOBACTERIUM LONGUM SUBSP. INFANTIS
  2. TIZANIDINE HCL [Concomitant]
     Active Substance: TIZANIDINE HYDROCHLORIDE
  3. SINGULAIR [Concomitant]
     Active Substance: MONTELUKAST SODIUM
  4. FIORICET [Concomitant]
     Active Substance: ACETAMINOPHEN\BUTALBITAL\CAFFEINE
  5. NASONEX [Concomitant]
     Active Substance: MOMETASONE FUROATE
  6. XYREM [Suspect]
     Active Substance: SODIUM OXYBATE
     Dosage: 3 G, BID
     Route: 048
     Dates: start: 200508, end: 200705
  7. RALOXIFENE HCL [Concomitant]
     Active Substance: RALOXIFENE
  8. VITAMIN D3 [Concomitant]
     Active Substance: CHOLECALCIFEROL
  9. CHLORDIAZEPOXIDE. [Concomitant]
     Active Substance: CHLORDIAZEPOXIDE
  10. RETIN-A [Concomitant]
     Active Substance: TRETINOIN
  11. XYREM [Suspect]
     Active Substance: SODIUM OXYBATE
     Indication: FIBROMYALGIA
     Dosage: 2.25 G, BID
     Route: 048
     Dates: start: 200506, end: 200508
  12. OMEPRAZOLE. [Concomitant]
     Active Substance: OMEPRAZOLE
  13. HYDROCORTISONE ACETATE. [Concomitant]
     Active Substance: HYDROCORTISONE ACETATE
  14. GOLYTELY [Concomitant]
     Active Substance: POLYETHYLENE GLYCOL 3350\POTASSIUM CHLORIDE\SODIUM BICARBONATE\SODIUM CHLORIDE\SODIUM SULFATE ANHYDROUS
  15. PRESERVISION AREDS [Concomitant]
     Active Substance: MINERALS\VITAMINS
  16. COENZYME Q10 [Concomitant]
     Active Substance: UBIDECARENONE
  17. HYOSCYAMINE SULFATE. [Concomitant]
     Active Substance: HYOSCYAMINE SULFATE
  18. TOPAMAX [Concomitant]
     Active Substance: TOPIRAMATE
  19. CLINDAMYCIN HYDROCHLORIDE. [Concomitant]
     Active Substance: CLINDAMYCIN HYDROCHLORIDE
  20. ZYRTEC [Concomitant]
     Active Substance: CETIRIZINE HYDROCHLORIDE
  21. XYREM [Suspect]
     Active Substance: SODIUM OXYBATE
     Dosage: 4 G, BID
     Route: 048
     Dates: start: 200705
  22. CYMBALTA [Concomitant]
     Active Substance: DULOXETINE HYDROCHLORIDE

REACTIONS (4)
  - Colonoscopy [Unknown]
  - Diarrhoea [Unknown]
  - Constipation [Unknown]
  - Haemorrhoids [Unknown]

NARRATIVE: CASE EVENT DATE: 201604
